FAERS Safety Report 5059423-2 (Version None)
Quarter: 2006Q3

REPORT INFORMATION
  Report Type: 
  Country: None (occurrence: None)
  Receive Date: 20060718
  Receipt Date: 20060705
  Transmission Date: 20061208
  Serious: Yes (Hospitalization)
  Sender: FDA-Public Use
  Company Number: THQ2006A00440

PATIENT
  Age: 65 Year
  Sex: Female

DRUGS (5)
  1. LANSOPRAZOLE [Suspect]
     Indication: HELICOBACTER INFECTION
  2. AZATHIOPRINE SODIUM [Concomitant]
  3. CLARITHROMYCIN [Concomitant]
  4. METRONIDAZOLE [Concomitant]
  5. ACETAMINOPHEN W/ PROPOXYPHENE HCL [Concomitant]

REACTIONS (15)
  - ANOREXIA [None]
  - ASPARTATE AMINOTRANSFERASE INCREASED [None]
  - BLOOD ALBUMIN DECREASED [None]
  - BLOOD ALKALINE PHOSPHATASE INCREASED [None]
  - BLOOD BILIRUBIN INCREASED [None]
  - BONE MARROW FAILURE [None]
  - CANDIDIASIS [None]
  - DRY MOUTH [None]
  - DYSPHAGIA [None]
  - HEPATOSPLENOMEGALY [None]
  - MALAISE [None]
  - PHARYNGOLARYNGEAL PAIN [None]
  - PYREXIA [None]
  - URINARY TRACT INFECTION [None]
  - WEIGHT DECREASED [None]
